FAERS Safety Report 11567714 (Version 2)
Quarter: 2015Q4

REPORT INFORMATION
  Report Type: Spontaneous
  Country: US (occurrence: US)
  Receive Date: 20150916
  Receipt Date: 20151027
  Transmission Date: 20160304
  Serious: No
  Sender: FDA-Public Use
  Company Number: US-ELI_LILLY_AND_COMPANY-US200907006538

PATIENT
  Sex: Female

DRUGS (1)
  1. FORTEO [Suspect]
     Active Substance: TERIPARATIDE
     Indication: OSTEOPOROSIS
     Dosage: 20 UG, DAILY (1/D)
     Dates: start: 20090624, end: 200910

REACTIONS (10)
  - Genital rash [Recovered/Resolved]
  - Urticaria [Recovered/Resolved]
  - Haemorrhage [Recovered/Resolved]
  - Rash [Recovering/Resolving]
  - Rash macular [Recovered/Resolved]
  - Skin mass [Recovered/Resolved]
  - Scratch [Recovered/Resolved]
  - Rash pruritic [Recovered/Resolved]
  - Hypersensitivity [Recovering/Resolving]
  - Scab [Recovering/Resolving]

NARRATIVE: CASE EVENT DATE: 200907
